APPROVED DRUG PRODUCT: ONUREG
Active Ingredient: AZACITIDINE
Strength: 200MG
Dosage Form/Route: TABLET;ORAL
Application: N214120 | Product #001
Applicant: BRISTOL MYERS SQUIBB CO
Approved: Sep 1, 2020 | RLD: Yes | RS: No | Type: RX

PATENTS:
Patent 8846628 | Expires: Jun 3, 2030
Patent 12053482 | Expires: May 14, 2029
Patent 11571436 | Expires: May 14, 2029

EXCLUSIVITY:
Code: ODE-320 | Date: Sep 1, 2027